FAERS Safety Report 4322099-3 (Version None)
Quarter: 2004Q1

REPORT INFORMATION
  Report Type: 
  Country: None (occurrence: None)
  Receive Date: 20040323
  Receipt Date: 20040310
  Transmission Date: 20041129
  Serious: Yes (Disabling)
  Sender: FDA-Public Use
  Company Number: IT-GLAXOSMITHKLINE-B0326196A

PATIENT
  Age: 32 Year
  Sex: Male

DRUGS (3)
  1. CEFAZOLIN [Suspect]
     Indication: PROPHYLAXIS
     Dosage: 2G THREE TIMES PER DAY
     Route: 042
     Dates: start: 20020423, end: 20020517
  2. CIPROFLOXACIN [Suspect]
     Indication: PROPHYLAXIS
     Dosage: 750MG TWICE PER DAY
     Route: 048
     Dates: start: 20020415, end: 20020715
  3. ENOXAPARIN SODIUM [Suspect]
     Indication: PROPHYLAXIS
     Dosage: .4ML PER DAY
     Dates: start: 20020415, end: 20020715

REACTIONS (1)
  - TOOTH LOSS [None]
